FAERS Safety Report 7482237-0 (Version None)
Quarter: 2011Q2

REPORT INFORMATION
  Report Type: 
  Country: None (occurrence: None)
  Receive Date: 20110516
  Receipt Date: 20110510
  Transmission Date: 20111010
  Serious: No
  Sender: FDA-Public Use
  Company Number: US-PFIZER INC-2011100674

PATIENT
  Sex: Male
  Weight: 81.633 kg

DRUGS (7)
  1. LIPITOR [Suspect]
     Indication: BLOOD CHOLESTEROL INCREASED
  2. AVODART [Concomitant]
     Indication: PROSTATOMEGALY
     Dosage: UNK
  3. PLAVIX [Concomitant]
     Indication: STENT PLACEMENT
  4. LIPITOR [Suspect]
     Indication: STENT PLACEMENT
     Dosage: 10 MG, 1X/DAY
     Route: 048
     Dates: start: 20110221
  5. PLAVIX [Concomitant]
     Indication: ANTICOAGULANT THERAPY
     Dosage: UNK
  6. ASPIRIN [Concomitant]
     Indication: ANTICOAGULANT THERAPY
     Dosage: UNK
  7. ASPIRIN [Concomitant]
     Indication: STENT PLACEMENT

REACTIONS (2)
  - MUSCULAR WEAKNESS [None]
  - FATIGUE [None]
